FAERS Safety Report 7992499-9 (Version None)
Quarter: 2011Q4

REPORT INFORMATION
  Report Type: 
  Country: None (occurrence: None)
  Receive Date: 20111219
  Receipt Date: 20111213
  Transmission Date: 20120403
  Serious: Yes (Other)
  Sender: FDA-Public Use
  Company Number: US-PFIZER INC-2011283392

PATIENT
  Sex: Female
  Weight: 65.8 kg

DRUGS (4)
  1. FLAXSEED OIL [Concomitant]
     Indication: BLOOD CHOLESTEROL
     Dosage: 1000 MG, 1X/DAY
  2. CLARITIN [Concomitant]
     Indication: HYPERSENSITIVITY
     Dosage: 10 MG, DAILY
  3. CHANTIX [Suspect]
     Indication: SMOKING CESSATION THERAPY
     Dosage: UNK
     Route: 048
     Dates: start: 20111101, end: 20110101
  4. VITAMIN B-12 [Concomitant]
     Dosage: 100 MG, DAILY

REACTIONS (3)
  - DEPRESSION [None]
  - DEPRESSED MOOD [None]
  - FEELING ABNORMAL [None]
